FAERS Safety Report 6746210-X (Version None)
Quarter: 2010Q2

REPORT INFORMATION
  Report Type: 
  Country: None (occurrence: None)
  Receive Date: 20100528
  Receipt Date: 20100202
  Transmission Date: 20101027
  Serious: No
  Sender: FDA-Public Use
  Company Number: US-ASTRAZENECA-2010SE04711

PATIENT
  Sex: Female
  Weight: 55.3 kg

DRUGS (2)
  1. PRILOSEC [Suspect]
     Indication: GASTROOESOPHAGEAL REFLUX DISEASE
     Route: 048
     Dates: start: 20070101, end: 20070101
  2. BONIVA [Concomitant]

REACTIONS (3)
  - DRUG INEFFECTIVE [None]
  - HIP FRACTURE [None]
  - OSTEOPOROSIS [None]
